FAERS Safety Report 5049375-3 (Version None)
Quarter: 2006Q3

REPORT INFORMATION
  Report Type: 
  Country: None (occurrence: None)
  Receive Date: 20060712
  Receipt Date: 20060613
  Transmission Date: 20061208
  Serious: Yes (Hospitalization, Other)
  Sender: FDA-Public Use
  Company Number: US-AMGEN-STX182777

PATIENT
  Sex: Female

DRUGS (14)
  1. ENBREL [Suspect]
     Indication: RHEUMATOID ARTHRITIS
     Route: 058
     Dates: start: 19990101, end: 20060101
  2. PREDNISONE [Concomitant]
  3. SYNTHROID [Concomitant]
  4. PROTONIX [Concomitant]
  5. ZETIA [Concomitant]
  6. ASPIRIN [Concomitant]
  7. NORVASC [Concomitant]
  8. TYLENOL (CAPLET) [Concomitant]
  9. CALCIUM GLUCONATE [Concomitant]
  10. ISORDIL [Concomitant]
  11. COREG [Concomitant]
  12. LOMOTIL [Concomitant]
  13. PREMPRO 14/14 [Concomitant]
  14. MULTIVITAMIN [Concomitant]

REACTIONS (4)
  - CHEST PAIN [None]
  - CORONARY ARTERY DISEASE [None]
  - NECK PAIN [None]
  - TACHYCARDIA [None]
